FAERS Safety Report 21800486 (Version 1)
Quarter: 2022Q4

REPORT INFORMATION
  Report Type: Spontaneous
  Country: US (occurrence: None)
  Receive Date: 20221229
  Receipt Date: 20221229
  Transmission Date: 20230113
  Serious: No
  Sender: FDA-Public Use
  Company Number: None

PATIENT
  Age: 8 Month
  Sex: Male
  Weight: 8 kg

DRUGS (1)
  1. HEMANGEOL [Suspect]
     Active Substance: PROPRANOLOL HYDROCHLORIDE
     Indication: Infantile haemangioma
     Dosage: FREQUENCY : TWICE A DAY;?
     Route: 048
     Dates: start: 20220701

REACTIONS (2)
  - Peripheral coldness [None]
  - Cyanosis [None]

NARRATIVE: CASE EVENT DATE: 20221229
